FAERS Safety Report 12628889 (Version 1)
Quarter: 2016Q3

REPORT INFORMATION
  Report Type: Report from Study
  Country: BR (occurrence: BR)
  Receive Date: 20160808
  Receipt Date: 20160808
  Transmission Date: 20161109
  Serious: Yes (Hospitalization, Other)
  Sender: FDA-Public Use
  Company Number: PHHY2016BR107911

PATIENT
  Sex: Female

DRUGS (4)
  1. ONBREZ BREEZHALER [Suspect]
     Active Substance: INDACATEROL
     Dosage: 300 UG, QD (WHEN SHE IS FEELING WEAKER)
     Route: 055
  2. SPIRIVA [Concomitant]
     Active Substance: TIOTROPIUM BROMIDE MONOHYDRATE
     Indication: PRODUCT USED FOR UNKNOWN INDICATION
     Route: 055
  3. CELONG [Concomitant]
     Indication: PRODUCT USED FOR UNKNOWN INDICATION
     Route: 055
  4. ONBREZ BREEZHALER [Suspect]
     Active Substance: INDACATEROL
     Indication: EMPHYSEMA
     Dosage: 150 UG, QD
     Route: 055

REACTIONS (12)
  - Asthenia [Recovered/Resolved]
  - Nasopharyngitis [Recovering/Resolving]
  - Joint swelling [Unknown]
  - Weight bearing difficulty [Unknown]
  - Dengue fever [Recovered/Resolved]
  - Immune system disorder [Unknown]
  - Fibromyalgia [Unknown]
  - Pneumonia [Recovered/Resolved]
  - Hypoxia [Unknown]
  - Asthenia [Unknown]
  - Blood calcium decreased [Unknown]
  - Emotional disorder [Unknown]
